FAERS Safety Report 6751856-9 (Version None)
Quarter: 2010Q2

REPORT INFORMATION
  Report Type: 
  Country: None (occurrence: None)
  Receive Date: 20100526
  Receipt Date: 20100401
  Transmission Date: 20101027
  Serious: No
  Sender: FDA-Public Use
  Company Number: 306641

PATIENT
  Age: 66 Year
  Sex: Female

DRUGS (1)
  1. VICTOZA [Suspect]
     Indication: INSULIN-REQUIRING TYPE 2 DIABETES MELLITUS
     Dosage: 1.2 MG, SUBCUTANEOUS
     Route: 058
     Dates: end: 20100328

REACTIONS (3)
  - ABDOMINAL PAIN UPPER [None]
  - DECREASED APPETITE [None]
  - NAUSEA [None]
